FAERS Safety Report 21474107 (Version 6)
Quarter: 2023Q1

REPORT INFORMATION
  Report Type: Report from Study
  Country: US (occurrence: US)
  Receive Date: 20221018
  Receipt Date: 20230213
  Transmission Date: 20230418
  Serious: Yes (Other)
  Sender: FDA-Public Use
  Company Number: US-NOVARTISTESTPH-NVSC2022US234711

PATIENT
  Sex: Female

DRUGS (1)
  1. AFINITOR [Suspect]
     Active Substance: EVEROLIMUS
     Indication: Product used for unknown indication
     Dosage: 5 MG, QD
     Route: 048

REACTIONS (9)
  - Neoplasm malignant [Unknown]
  - Recurrent cancer [Unknown]
  - Neuropathy peripheral [Unknown]
  - Brain neoplasm [Unknown]
  - Road traffic accident [Unknown]
  - Dermatitis [Unknown]
  - Eczema [Unknown]
  - Laryngitis [Unknown]
  - Oedema peripheral [Unknown]
